FAERS Safety Report 6356565-6 (Version None)
Quarter: 2009Q3

REPORT INFORMATION
  Report Type: 
  Country: None (occurrence: None)
  Receive Date: 20090910
  Receipt Date: 20090910
  Transmission Date: 20100115
  Serious: Yes (Life-Threatening, Hospitalization, Other)
  Sender: FDA-Public Use
  Company Number: None

PATIENT
  Age: 71 Year
  Sex: Male
  Weight: 99.7913 kg

DRUGS (2)
  1. JANTOVEN [Suspect]
     Indication: ATRIAL FIBRILLATION
     Dosage: 10 MG 1X PO
     Route: 048
     Dates: start: 20090803, end: 20090904
  2. COUMADIN [Suspect]

REACTIONS (3)
  - DRUG INEFFECTIVE [None]
  - DRUG LEVEL CHANGED [None]
  - PRODUCT SUBSTITUTION ISSUE [None]
